FAERS Safety Report 11316826 (Version 1)
Quarter: 2015Q3

REPORT INFORMATION
  Report Type: Spontaneous
  Country: US (occurrence: US)
  Receive Date: 20150728
  Receipt Date: 20150728
  Transmission Date: 20151125
  Serious: No
  Sender: FDA-Public Use
  Company Number: US-MYLANLABS-2015M1008876

PATIENT
  Sex: Male

DRUGS (1)
  1. TRIAMTERENE AND HYDROCHLOROTHIAZIDE CAPSULES, USP [Suspect]
     Active Substance: HYDROCHLOROTHIAZIDE\TRIAMTERENE
     Indication: HYPERTENSION
     Dosage: 37.5 MG/25 MG, QD
     Route: 048

REACTIONS (1)
  - Flatulence [Not Recovered/Not Resolved]

NARRATIVE: CASE EVENT DATE: 2015
